FAERS Safety Report 8818974 (Version 1)
Quarter: 2012Q4

REPORT INFORMATION
  Report Type: 
  Country: FR (occurrence: FR)
  Receive Date: 20121001
  Receipt Date: 20121001
  Transmission Date: 20130627
  Serious: Yes (Hospitalization)
  Sender: FDA-Public Use
  Company Number: PHHY2012FR084372

PATIENT
  Age: 61 Year
  Sex: Male

DRUGS (12)
  1. TEGRETOL [Suspect]
     Indication: CONVULSION
     Dosage: UNK
     Dates: start: 201203, end: 20120723
  2. COVERSYL [Concomitant]
  3. DIFFU K [Concomitant]
  4. IMOVANE [Concomitant]
  5. XANAX [Concomitant]
  6. INEXIUM [Concomitant]
  7. FORLAX [Concomitant]
  8. PARACETAMOL [Concomitant]
  9. CORTANCYL [Concomitant]
  10. LOVENOX [Concomitant]
  11. LAROXYL [Concomitant]
  12. LYRICA [Concomitant]

REACTIONS (3)
  - Nervous system disorder [Unknown]
  - General physical health deterioration [Unknown]
  - Hyponatraemia [Recovered/Resolved]
